FAERS Safety Report 4967039-9 (Version None)
Quarter: 2006Q1

REPORT INFORMATION
  Report Type: 
  Country: None (occurrence: None)
  Receive Date: 20060201
  Receipt Date: 20051111
  Transmission Date: 20060701
  Serious: No
  Sender: FDA-Public Use
  Company Number: 2005PV005440

PATIENT
  Age: 53 Year
  Sex: Female
  Weight: 87.9978 kg

DRUGS (14)
  1. BYETTA [Suspect]
     Indication: DIABETES MELLITUS NON-INSULIN-DEPENDENT
     Dosage: 5 MCG, BID, SC
     Route: 058
     Dates: start: 20051019
  2. TRAMADOL HCL [Suspect]
     Indication: RHEUMATOID ARTHRITIS
     Dates: start: 20051001, end: 20051001
  3. ASPIRIN [Concomitant]
  4. METAGLIP [Concomitant]
  5. PLAQUENIL [Concomitant]
  6. ATACAND [Concomitant]
  7. NORVASC [Concomitant]
  8. TOPROL-XL [Concomitant]
  9. TYLENOL (CAPLET) [Concomitant]
  10. ADVIL [Concomitant]
  11. MOBIC [Concomitant]
  12. ULTRACET [Concomitant]
  13. LIPITOR [Concomitant]
  14. ALEVE (CAPLET) [Concomitant]

REACTIONS (15)
  - BLOOD GLUCOSE INCREASED [None]
  - CONDITION AGGRAVATED [None]
  - COUGH [None]
  - DECREASED APPETITE [None]
  - INJECTION SITE BRUISING [None]
  - INJECTION SITE HAEMORRHAGE [None]
  - INJECTION SITE PAIN [None]
  - MYALGIA [None]
  - NASOPHARYNGITIS [None]
  - NAUSEA [None]
  - PHARYNGOLARYNGEAL PAIN [None]
  - RASH [None]
  - SNEEZING [None]
  - VOMITING [None]
  - WEIGHT DECREASED [None]
